FAERS Safety Report 23189708 (Version 2)
Quarter: 2023Q4

REPORT INFORMATION
  Report Type: Report from Study
  Country: US (occurrence: US)
  Receive Date: 20231116
  Receipt Date: 20231120
  Transmission Date: 20240109
  Serious: No
  Sender: FDA-Public Use
  Company Number: US-002147023-NVSC2023US242379

PATIENT
  Sex: Female

DRUGS (1)
  1. COSENTYX [Suspect]
     Active Substance: SECUKINUMAB
     Indication: Psoriasis
     Dosage: UNK
     Route: 065

REACTIONS (16)
  - Myalgia [Unknown]
  - Movement disorder [Unknown]
  - Arthralgia [Unknown]
  - Neoplasm skin [Unknown]
  - Joint stiffness [Unknown]
  - Psoriasis [Unknown]
  - Rash [Unknown]
  - Dry skin [Unknown]
  - Pruritus [Unknown]
  - Papule [Unknown]
  - Skin exfoliation [Unknown]
  - Erythema [Unknown]
  - Skin plaque [Unknown]
  - Skin burning sensation [Unknown]
  - Pain [Unknown]
  - Therapeutic product effect incomplete [Unknown]
